FAERS Safety Report 9053371 (Version 2)
Quarter: 2013Q4

REPORT INFORMATION
  Report Type: Spontaneous
  Country: US (occurrence: US)
  Receive Date: 20130208
  Receipt Date: 20131111
  Transmission Date: 20140711
  Serious: Yes (Other)
  Sender: FDA-Public Use
  Company Number: US-TEVA-385026USA

PATIENT
  Age: 24 Year
  Sex: Female
  Weight: 56.75 kg

DRUGS (4)
  1. PLAN B ONE-STEP [Suspect]
     Indication: POST COITAL CONTRACEPTION
     Dosage: 1.5 MILLIGRAM DAILY;
     Route: 048
     Dates: start: 20121203, end: 20121203
  2. OXYBUTYNIN [Concomitant]
     Indication: HYPERTONIC BLADDER
  3. PROZAC [Concomitant]
     Indication: DEPRESSION
  4. PROZAC [Concomitant]
     Indication: ANXIETY

REACTIONS (2)
  - Pregnancy after post coital contraception [Unknown]
  - Drug ineffective [Unknown]
